FAERS Safety Report 8513033-0 (Version None)
Quarter: 2012Q3

REPORT INFORMATION
  Report Type: 
  Country: None (occurrence: None)
  Receive Date: 20120705
  Receipt Date: 20120618
  Transmission Date: 20120928
  Serious: Yes (Hospitalization)
  Sender: FDA-Public Use
  Company Number: 2012032687

PATIENT
  Sex: Female

DRUGS (6)
  1. BETAPRED [Concomitant]
  2. DESMOPRESSIN ACETATE [Suspect]
     Indication: THROMBOCYTOPENIA
     Dates: start: 20120216, end: 20120216
  3. OXAZEPAM [Concomitant]
  4. IMOVANE (ZOPICLONE) [Concomitant]
  5. XELODA [Concomitant]
  6. PRENISOLON (PREDNISOLONE) [Concomitant]

REACTIONS (4)
  - MENTAL DISORDER [None]
  - HYPONATRAEMIA [None]
  - OFF LABEL USE [None]
  - COMA [None]
